FAERS Safety Report 6426715-1 (Version None)
Quarter: 2009Q4

REPORT INFORMATION
  Report Type: 
  Country: None (occurrence: None)
  Receive Date: 20091104
  Receipt Date: 20091026
  Transmission Date: 20100525
  Serious: Yes (Other)
  Sender: FDA-Public Use
  Company Number: KR-ELI_LILLY_AND_COMPANY-KR200909004181

PATIENT
  Age: 54 Year
  Sex: Female
  Weight: 74 kg

DRUGS (6)
  1. BYETTA [Suspect]
     Indication: TYPE 2 DIABETES MELLITUS
     Dosage: 5 UG, 2/D
     Route: 058
     Dates: start: 20090917
  2. BYETTA [Suspect]
     Dosage: 5 UG, 4/D
     Route: 058
  3. ORAL ANTIDIABETICS [Concomitant]
     Indication: DIABETES MELLITUS
     Dosage: UNK, UNKNOWN
     Route: 048
  4. HUMALOG [Concomitant]
     Dosage: 12 U, 2/D
     Route: 065
     Dates: end: 20090901
  5. HUMALOG [Concomitant]
     Dosage: 7 U, 2/D
     Route: 065
     Dates: start: 20090901, end: 20091019
  6. HUMALOG [Concomitant]
     Dosage: 7 U, 2/D
     Route: 065
     Dates: start: 20091022

REACTIONS (10)
  - ABDOMINAL PAIN UPPER [None]
  - ACTIVITIES OF DAILY LIVING IMPAIRED [None]
  - BLOOD GLUCOSE INCREASED [None]
  - DRUG DOSE OMISSION [None]
  - DRUG INEFFECTIVE [None]
  - DYSPEPSIA [None]
  - HYPOPHAGIA [None]
  - INTENTIONAL DRUG MISUSE [None]
  - NAUSEA [None]
  - OFF LABEL USE [None]
